FAERS Safety Report 9785632 (Version 1)
Quarter: 2013Q4

REPORT INFORMATION
  Report Type: Spontaneous
  Country: US (occurrence: US)
  Receive Date: 20131227
  Receipt Date: 20131227
  Transmission Date: 20140711
  Serious: Yes (Hospitalization)
  Sender: FDA-Public Use
  Company Number: US-ELI_LILLY_AND_COMPANY-US201312007436

PATIENT
  Age: 51 Year
  Sex: Female

DRUGS (3)
  1. CYMBALTA [Suspect]
     Indication: PAIN
     Dosage: 60 MG, UNKNOWN
     Route: 065
     Dates: start: 201207
  2. METOPROLOL [Concomitant]
     Indication: HYPERTENSION
     Dosage: UNK, UNKNOWN
     Route: 065
  3. LEVOTHYROXIN [Concomitant]
     Indication: THYROIDECTOMY
     Dosage: UNK, UNKNOWN
     Route: 065

REACTIONS (29)
  - Rotator cuff syndrome [Unknown]
  - Pain [Unknown]
  - Middle ear effusion [Not Recovered/Not Resolved]
  - Pain [Unknown]
  - Drug dose omission [Unknown]
  - Burning sensation [Unknown]
  - Decreased activity [Unknown]
  - Arthritis [Unknown]
  - Stress [Unknown]
  - Hypoacusis [Unknown]
  - Skin disorder [Unknown]
  - Crying [Unknown]
  - Cognitive disorder [Unknown]
  - Blepharitis [Not Recovered/Not Resolved]
  - Conjunctivitis [Not Recovered/Not Resolved]
  - Lacrimation increased [Not Recovered/Not Resolved]
  - Sensation of foreign body [Unknown]
  - Eye infection [Unknown]
  - Erythema of eyelid [Not Recovered/Not Resolved]
  - Fibromyalgia [Unknown]
  - Memory impairment [Unknown]
  - Myalgia [Unknown]
  - Vertigo [Not Recovered/Not Resolved]
  - Haemorrhage [Unknown]
  - Visual impairment [Not Recovered/Not Resolved]
  - Feeling abnormal [Unknown]
  - Drug hypersensitivity [Unknown]
  - Nightmare [Unknown]
  - Drug withdrawal syndrome [Unknown]
